FAERS Safety Report 10758518 (Version 1)
Quarter: 2015Q1

REPORT INFORMATION
  Report Type: Spontaneous
  Country: US (occurrence: None)
  Receive Date: 20150202
  Receipt Date: 20150202
  Transmission Date: 20150721
  Serious: Yes (Disabling)
  Sender: FDA-Public Use
  Company Number: None

PATIENT
  Age: 37 Year
  Sex: Female
  Weight: 81.65 kg

DRUGS (2)
  1. MIRVASO [Suspect]
     Active Substance: BRIMONIDINE TARTRATE
     Indication: ROSACEA
     Dosage: 5 PEA SIZE AMT/12 HOURS AS NEE
     Route: 061
     Dates: start: 20150125, end: 20150127
  2. MIRVASO [Suspect]
     Active Substance: BRIMONIDINE TARTRATE
     Indication: ERYTHEMA
     Dosage: 5 PEA SIZE AMT/12 HOURS AS NEE
     Route: 061
     Dates: start: 20150125, end: 20150127

REACTIONS (7)
  - Skin swelling [None]
  - Heart rate increased [None]
  - Skin warm [None]
  - Skin injury [None]
  - Burning sensation [None]
  - Anxiety [None]
  - Flushing [None]

NARRATIVE: CASE EVENT DATE: 20150127
